FAERS Safety Report 8103959-4 (Version None)
Quarter: 2012Q1

REPORT INFORMATION
  Report Type: 
  Country: None (occurrence: None)
  Receive Date: 20120201
  Receipt Date: 20120130
  Transmission Date: 20120608
  Serious: Yes (Hospitalization)
  Sender: FDA-Public Use
  Company Number: PHHY2011CO96796

PATIENT
  Sex: Male

DRUGS (6)
  1. CALTRATE [Concomitant]
     Dosage: 2 TSP, 2 SPOONS PER DAY
  2. LORATADINE [Concomitant]
     Dosage: UNK UKN, QD
  3. ZOLEDRONOC ACID [Suspect]
     Indication: OSTEOPOROSIS
     Dosage: 5 MG/100 ML 1 INFUSION PER YEAR
     Route: 042
     Dates: start: 20111014
  4. CRESTOR [Concomitant]
     Dosage: 10 MG, 1 TABLET PER DAY
  5. VITAMIN D [Concomitant]
     Dosage: UNK UKN, QD
  6. DOLEX [Concomitant]
     Dosage: UNK UKN, Q8H
     Dates: start: 20111013, end: 20111020

REACTIONS (5)
  - INFLAMMATION [None]
  - HEADACHE [None]
  - PAIN [None]
  - PYREXIA [None]
  - CHILLS [None]
